FAERS Safety Report 4384348-5 (Version None)
Quarter: 2004Q2

REPORT INFORMATION
  Report Type: 
  Country: None (occurrence: None)
  Receive Date: 20040621
  Receipt Date: 20040609
  Transmission Date: 20050107
  Serious: Yes (Other)
  Sender: FDA-Public Use
  Company Number: 2004037879

PATIENT

DRUGS (3)
  1. ATARAX [Suspect]
     Indication: PREMEDICATION
     Dosage: ORAL
     Route: 048
     Dates: start: 20040603, end: 20040603
  2. CHLORAL HYDRATE (CHLORAL HYDRATE) [Suspect]
     Indication: PREMEDICATION
     Dosage: ORAL
     Route: 048
     Dates: start: 20040603, end: 20040603
  3. TRICLOFOS SODIUM [Concomitant]

REACTIONS (4)
  - ASTHMA [None]
  - DRUG ERUPTION [None]
  - SHOCK [None]
  - STRIDOR [None]
